FAERS Safety Report 25509794 (Version 1)
Quarter: 2025Q3

REPORT INFORMATION
  Report Type: Spontaneous
  Country: US (occurrence: None)
  Receive Date: 20250702
  Receipt Date: 20250702
  Transmission Date: 20251020
  Serious: Yes (Other)
  Sender: FDA-CTU
  Company Number: None

PATIENT
  Age: 44 Year
  Sex: Female

DRUGS (1)
  1. JOURNAVX [Suspect]
     Active Substance: SUZETRIGINE
     Indication: Pain
     Dosage: 50 MG TWICE A DAY ORAL ?
     Route: 048
     Dates: start: 20250411, end: 20250622

REACTIONS (5)
  - Therapy cessation [None]
  - Influenza like illness [None]
  - Vision blurred [None]
  - Mood altered [None]
  - Syncope [None]

NARRATIVE: CASE EVENT DATE: 20250625
